FAERS Safety Report 10087242 (Version 1)
Quarter: 2014Q2

REPORT INFORMATION
  Report Type: Spontaneous
  Country: US (occurrence: US)
  Receive Date: 20140418
  Receipt Date: 20140418
  Transmission Date: 20141212
  Serious: Yes (Other)
  Sender: FDA-Public Use
  Company Number: CHPA2014US005422

PATIENT
  Sex: Female

DRUGS (1)
  1. TRANSDERM SCOP [Suspect]

REACTIONS (3)
  - Drug withdrawal syndrome [Unknown]
  - Feeling abnormal [Unknown]
  - Vomiting [Unknown]
